FAERS Safety Report 9501928 (Version 1)
Quarter: 2013Q3

REPORT INFORMATION
  Report Type: Spontaneous
  Country: GB (occurrence: GB)
  Receive Date: 20130905
  Receipt Date: 20130905
  Transmission Date: 20140515
  Serious: Yes (Hospitalization, Other)
  Sender: FDA-Public Use
  Company Number: GB-TEVA-429704ISR

PATIENT
  Age: 66 Year
  Sex: Male

DRUGS (9)
  1. BENDROFLUMETHIAZIDE [Suspect]
     Dosage: TAKEN IN THE MORNING.
     Route: 048
  2. QUETIAPINE [Suspect]
     Route: 048
  3. CITALOPRAM [Suspect]
     Route: 048
  4. AMITRIPTYLINE [Suspect]
     Dosage: TAKEN AT NIGHT.
     Route: 048
  5. FELODIPINE [Concomitant]
  6. SIMVASTATIN [Concomitant]
     Dosage: AT NIGHT
  7. TRAMADOL [Concomitant]
     Dosage: 50-100MG FOUR TIMES DAILY AS REQUIRED.
  8. TESTOGEL [Concomitant]
     Dosage: SACHET
  9. AMOXICILLIN [Concomitant]
     Dosage: COMMENCED DAY PRIOR TO ADMISSION.

REACTIONS (3)
  - Hyponatraemia [Recovered/Resolved]
  - Confusional state [Unknown]
  - Balance disorder [Unknown]
